FAERS Safety Report 23566123 (Version 2)
Quarter: 2024Q1

REPORT INFORMATION
  Report Type: Spontaneous
  Country: MX (occurrence: MX)
  Receive Date: 20240226
  Receipt Date: 20240307
  Transmission Date: 20240410
  Serious: Yes (Other)
  Sender: FDA-Public Use
  Company Number: MX-BAYER-2024A024879

PATIENT
  Age: 5 Decade
  Sex: Female

DRUGS (1)
  1. DIENOGEST\ESTRADIOL VALERATE [Suspect]
     Active Substance: DIENOGEST\ESTRADIOL VALERATE
     Indication: Oral contraception

REACTIONS (2)
  - Facial pain [Recovered/Resolved]
  - Cerebral venous thrombosis [Recovered/Resolved with Sequelae]
